FAERS Safety Report 4757761-1 (Version None)
Quarter: 2005Q3

REPORT INFORMATION
  Report Type: 
  Country: None (occurrence: None)
  Receive Date: 20050829
  Receipt Date: 20050817
  Transmission Date: 20060218
  Serious: Yes (Death)
  Sender: FDA-Public Use
  Company Number: 2004076089

PATIENT
  Age: 35 Year
  Sex: Male

DRUGS (4)
  1. GEODON [Suspect]
     Indication: BIPOLAR DISORDER
  2. ALCOHOL (ETHANOL) [Suspect]
     Indication: ILL-DEFINED DISORDER
  3. ALL OTHER THERAPEUTIC PRODUCTS (ALL OTHER THERAPEUTIC PRODUCTS) [Suspect]
     Indication: ILL-DEFINED DISORDER
  4. VALIUM [Concomitant]

REACTIONS (3)
  - ALCOHOL POISONING [None]
  - DRUG ABUSER [None]
  - MULTIPLE DRUG OVERDOSE [None]
